FAERS Safety Report 21720604 (Version 1)
Quarter: 2022Q4

REPORT INFORMATION
  Report Type: Spontaneous
  Country: US (occurrence: None)
  Receive Date: 20221212
  Receipt Date: 20221212
  Transmission Date: 20230113
  Serious: No
  Sender: FDA-Public Use
  Company Number: None

PATIENT
  Age: 60 Year
  Sex: Male

DRUGS (1)
  1. VARENICLINE [Suspect]
     Active Substance: VARENICLINE
     Indication: Nicotine dependence
     Dosage: OTHER FREQUENCY : SLIDING SCALE;?
     Dates: start: 20180829, end: 20181113

REACTIONS (5)
  - Rash [None]
  - Drug ineffective [None]
  - Drug dependence [None]
  - Rash macular [None]
  - Rash pruritic [None]

NARRATIVE: CASE EVENT DATE: 20180924
